FAERS Safety Report 5106364-8 (Version None)
Quarter: 2006Q3

REPORT INFORMATION
  Report Type: 
  Country: None (occurrence: None)
  Receive Date: 20060912
  Receipt Date: 20060828
  Transmission Date: 20061208
  Serious: Yes (Hospitalization)
  Sender: FDA-Public Use
  Company Number: E2090-00056-SPO-JP

PATIENT
  Age: 40 Year
  Sex: Male

DRUGS (6)
  1. ZONISAMIDE [Suspect]
     Indication: PARKINSON'S DISEASE
     Dosage: 100 MG, 1 IN 1 D, ORAL
     Route: 048
     Dates: start: 20060614, end: 20060621
  2. SINEMET [Suspect]
     Indication: PARKINSON'S DISEASE
     Dosage: 300 MG, ORAL
     Route: 048
     Dates: start: 20000101
  3. FP (SELEGILINE) [Suspect]
     Indication: PARKINSON'S DISEASE
     Dosage: 10 MG, ORAL
     Route: 048
     Dates: start: 20010301
  4. CABERGOLINE [Suspect]
     Indication: PARKINSON'S DISEASE
     Dosage: 5 MG, ORAL
     Route: 048
     Dates: start: 20030701
  5. ARTANE [Suspect]
     Indication: PARKINSON'S DISEASE
     Dosage: 4 MG, ORAL
     Route: 048
     Dates: start: 20000201
  6. PARLODEL [Suspect]
     Indication: PARKINSON'S DISEASE
     Dosage: 7.5 MG, ORAL
     Route: 048
     Dates: start: 20000101

REACTIONS (4)
  - CONDITION AGGRAVATED [None]
  - DRUG INTERACTION [None]
  - HALLUCINATION, AUDITORY [None]
  - PERSECUTORY DELUSION [None]
